FAERS Safety Report 7525573-1 (Version None)
Quarter: 2011Q2

REPORT INFORMATION
  Report Type: 
  Country: None (occurrence: None)
  Receive Date: 20110606
  Receipt Date: 20110523
  Transmission Date: 20111010
  Serious: Yes (Hospitalization)
  Sender: FDA-Public Use
  Company Number: PHHY2011TW44077

PATIENT
  Age: 80 Year
  Sex: Female

DRUGS (1)
  1. ZOLEDRONIC ACID [Suspect]
     Indication: OSTEOPOROSIS POSTMENOPAUSAL
     Dosage: 5 MG/100CC ONCE PER YEAR
     Route: 042
     Dates: start: 20110512

REACTIONS (3)
  - BLOOD URINE PRESENT [None]
  - VOMITING [None]
  - DECREASED APPETITE [None]
